FAERS Safety Report 21965606 (Version 1)
Quarter: 2023Q1

REPORT INFORMATION
  Report Type: Spontaneous
  Country: US (occurrence: US)
  Receive Date: 20230208
  Receipt Date: 20230208
  Transmission Date: 20230418
  Serious: No
  Sender: FDA-Public Use
  Company Number: US-ELI_LILLY_AND_COMPANY-US202302002758

PATIENT
  Age: 28 Year
  Sex: Male

DRUGS (1)
  1. OLUMIANT [Suspect]
     Active Substance: BARICITINIB
     Indication: Alopecia universalis
     Dosage: 4 MG, DAILY
     Route: 048
     Dates: start: 202301

REACTIONS (6)
  - Disorientation [Unknown]
  - Emotional disorder [Unknown]
  - Appetite disorder [Unknown]
  - Anxiety disorder [Unknown]
  - Asthenia [Unknown]
  - Fatigue [Unknown]

NARRATIVE: CASE EVENT DATE: 20230115
